FAERS Safety Report 7669046-4 (Version None)
Quarter: 2011Q3

REPORT INFORMATION
  Report Type: 
  Country: None (occurrence: None)
  Receive Date: 20110808
  Receipt Date: 20110324
  Transmission Date: 20111222
  Serious: No
  Sender: FDA-Public Use
  Company Number: US-ELI_LILLY_AND_COMPANY-US201102007055

PATIENT
  Age: 76 Year
  Sex: Female

DRUGS (11)
  1. CYMBALTA [Suspect]
     Indication: NEUROPATHY PERIPHERAL
     Dosage: 30 MG, DAILY (1/D)
  2. LORAZEPAM [Concomitant]
  3. NORVASC [Concomitant]
  4. DRUG USED IN DIABETES [Concomitant]
  5. ANTIDEPRESSANTS [Concomitant]
  6. ARICEPT [Concomitant]
  7. CYMBALTA [Suspect]
     Dosage: 60 MG, DAILY (1/D)
  8. AMBIEN [Concomitant]
  9. PERCOCET [Concomitant]
  10. INSULIN [Concomitant]
  11. BETA BLOCKING AGENTS [Concomitant]

REACTIONS (1)
  - NO ADVERSE EVENT [None]
